FAERS Safety Report 15907876 (Version 4)
Quarter: 2020Q3

REPORT INFORMATION
  Report Type: Spontaneous
  Country: US (occurrence: US)
  Receive Date: 20190204
  Receipt Date: 20200902
  Transmission Date: 20201102
  Serious: Yes (Hospitalization, Other)
  Sender: FDA-Public Use
  Company Number: US-ASTRAZENECA-2019SE11966

PATIENT
  Age: 16930 Day
  Sex: Female
  Weight: 137.9 kg

DRUGS (51)
  1. BETAMETHASONE. [Concomitant]
     Active Substance: BETAMETHASONE
  2. FOLIC ACID. [Concomitant]
     Active Substance: FOLIC ACID
  3. CYMBALTA [Concomitant]
     Active Substance: DULOXETINE HYDROCHLORIDE
  4. VERAPAMIL [Concomitant]
     Active Substance: VERAPAMIL HYDROCHLORIDE
  5. NITROGLYCERINE [Concomitant]
     Active Substance: NITROGLYCERIN
  6. FORADIL [Concomitant]
     Active Substance: FORMOTEROL FUMARATE
  7. NAPROXEN. [Concomitant]
     Active Substance: NAPROXEN
  8. ALBUTEROL. [Concomitant]
     Active Substance: ALBUTEROL
  9. PROMETHAZINE [Concomitant]
     Active Substance: PROMETHAZINE HYDROCHLORIDE
  10. LYRICA [Concomitant]
     Active Substance: PREGABALIN
  11. FLAGYL [Concomitant]
     Active Substance: METRONIDAZOLE\METRONIDAZOLE HYDROCHLORIDE
  12. CARVEDILOL. [Concomitant]
     Active Substance: CARVEDILOL
  13. MORPHINE [Concomitant]
     Active Substance: MORPHINE
  14. ASPIRIN. [Concomitant]
     Active Substance: ASPIRIN
  15. PRILOSEC [Suspect]
     Active Substance: OMEPRAZOLE MAGNESIUM
     Indication: GASTROOESOPHAGEAL REFLUX DISEASE
     Dosage: GENERIC
     Route: 048
  16. FUROSEMIDE. [Concomitant]
     Active Substance: FUROSEMIDE
  17. RISPERIDONE. [Concomitant]
     Active Substance: RISPERIDONE
  18. CALCITRIOL. [Concomitant]
     Active Substance: CALCITRIOL
  19. FENTANYL. [Concomitant]
     Active Substance: FENTANYL
  20. IBUPROFEN. [Concomitant]
     Active Substance: IBUPROFEN
  21. DEPAKOTE ER [Concomitant]
     Active Substance: DIVALPROEX SODIUM
  22. OXYCODONE HYDROCHLORIDE. [Concomitant]
     Active Substance: OXYCODONE HYDROCHLORIDE
  23. CETRIZINE [Concomitant]
     Active Substance: CETIRIZINE HYDROCHLORIDE
  24. BACLOFEN. [Concomitant]
     Active Substance: BACLOFEN
  25. OXYCODONE [Concomitant]
     Active Substance: OXYCODONE
  26. ATIVAN [Concomitant]
     Active Substance: LORAZEPAM
  27. COUMADIN [Concomitant]
     Active Substance: WARFARIN SODIUM
  28. ALPRAZOLAM. [Concomitant]
     Active Substance: ALPRAZOLAM
  29. TRAMADOL. [Concomitant]
     Active Substance: TRAMADOL
  30. LEVALBUTEROL. [Concomitant]
     Active Substance: LEVALBUTEROL
  31. LIDODERM [Concomitant]
     Active Substance: LIDOCAINE
  32. QVAR [Concomitant]
     Active Substance: BECLOMETHASONE DIPROPIONATE
  33. AMBIEN [Concomitant]
     Active Substance: ZOLPIDEM TARTRATE
  34. VITAMIN D2 [Concomitant]
     Active Substance: ERGOCALCIFEROL
  35. ETHYL CHLORIDE [Concomitant]
     Active Substance: ETHYL CHLORIDE
  36. PRILOSEC [Suspect]
     Active Substance: OMEPRAZOLE MAGNESIUM
     Indication: GASTROOESOPHAGEAL REFLUX DISEASE
     Route: 048
     Dates: start: 1991, end: 2011
  37. PRILOSEC [Suspect]
     Active Substance: OMEPRAZOLE MAGNESIUM
     Indication: GASTROOESOPHAGEAL REFLUX DISEASE
     Route: 048
     Dates: start: 1992, end: 2018
  38. PREDNISONE. [Concomitant]
     Active Substance: PREDNISONE
  39. CYCLOBENZAPRINE. [Concomitant]
     Active Substance: CYCLOBENZAPRINE
  40. RYTHMOL [Concomitant]
     Active Substance: PROPAFENONE HYDROCHLORIDE
  41. SINGULAIR [Concomitant]
     Active Substance: MONTELUKAST SODIUM
  42. DOXYCYCLINE. [Concomitant]
     Active Substance: DOXYCYCLINE
  43. AVELOX [Concomitant]
     Active Substance: MOXIFLOXACIN HYDROCHLORIDE
  44. CALCIUM [Concomitant]
     Active Substance: CALCIUM
  45. LOSARTAN. [Concomitant]
     Active Substance: LOSARTAN
  46. COZAAR [Concomitant]
     Active Substance: LOSARTAN POTASSIUM
  47. VITAMIN B12 [Concomitant]
     Active Substance: CYANOCOBALAMIN
  48. SERTRALINE [Concomitant]
     Active Substance: SERTRALINE HYDROCHLORIDE
  49. ETHYOL [Concomitant]
     Active Substance: AMIFOSTINE
  50. VAGIFEM [Concomitant]
     Active Substance: ESTRADIOL
  51. DARVOCET [Concomitant]
     Active Substance: ACETAMINOPHEN\PROPOXYPHENE HYDROCHLORIDE

REACTIONS (5)
  - Acute kidney injury [Unknown]
  - Chronic kidney disease [Not Recovered/Not Resolved]
  - Renal failure [Unknown]
  - Renal disorder [Unknown]
  - Renal injury [Unknown]

NARRATIVE: CASE EVENT DATE: 20080122
